FAERS Safety Report 9054636 (Version 1)
Quarter: 2013Q1

REPORT INFORMATION
  Report Type: Spontaneous
  Country: IT (occurrence: IT)
  Receive Date: 20130208
  Receipt Date: 20130208
  Transmission Date: 20140127
  Serious: Yes (Other)
  Sender: FDA-Public Use
  Company Number: IT-JNJFOC-20130201063

PATIENT
  Age: 74 None
  Sex: Female

DRUGS (2)
  1. KOLIBRI [Suspect]
     Indication: PAIN
     Route: 048
     Dates: start: 20120811, end: 20120811
  2. LANSOX [Concomitant]
     Route: 048

REACTIONS (4)
  - Drug intolerance [Recovering/Resolving]
  - Nausea [Recovering/Resolving]
  - Vomiting [Recovering/Resolving]
  - Presyncope [Recovering/Resolving]
